FAERS Safety Report 22093689 (Version 2)
Quarter: 2023Q2

REPORT INFORMATION
  Report Type: Spontaneous
  Country: US (occurrence: US)
  Receive Date: 20230314
  Receipt Date: 20230516
  Transmission Date: 20230721
  Serious: No
  Sender: FDA-Public Use
  Company Number: US-PHARMING-PHAUS2023000168

PATIENT

DRUGS (2)
  1. RUCONEST [Suspect]
     Active Substance: HUMAN C1-ESTERASE INHIBITOR
     Indication: Hereditary angioedema
     Dosage: 4200 IU, PRN
     Route: 042
     Dates: start: 20221001
  2. RUCONEST [Suspect]
     Active Substance: HUMAN C1-ESTERASE INHIBITOR
     Dosage: 4200 IU, AS NEEDED
     Route: 042
     Dates: start: 20220929

REACTIONS (4)
  - Vascular access site complication [Unknown]
  - Vein collapse [Unknown]
  - Central venous catheterisation [Unknown]
  - Weight increased [Unknown]

NARRATIVE: CASE EVENT DATE: 20230206
